FAERS Safety Report 6028598-0 (Version None)
Quarter: 2008Q4

REPORT INFORMATION
  Report Type: 
  Country: None (occurrence: None)
  Receive Date: 20081222
  Receipt Date: 20081028
  Transmission Date: 20090506
  Serious: No
  Sender: FDA-Public Use
  Company Number: US-WYE-H06612108

PATIENT
  Age: 54 Year
  Sex: Female
  Weight: 99.88 kg

DRUGS (13)
  1. PRISTIQ [Suspect]
     Indication: DEPRESSION
     Dosage: 50 MG 1X PER 1 DAY, ORAL
     Route: 048
     Dates: start: 20080801
  2. ACETYLSALICYLIC ACID SRT [Concomitant]
  3. CATAPRES [Concomitant]
  4. COZAAR [Concomitant]
  5. LASIX [Concomitant]
  6. GABAPENTIN [Concomitant]
  7. KLOR-CON [Concomitant]
  8. LABETALOL HCL [Concomitant]
  9. METFORMIN HCL [Concomitant]
  10. NORVASC [Concomitant]
  11. SIMVASTATIN [Concomitant]
  12. SPIRONOLACTONE [Concomitant]
  13. ZYRTEC [Concomitant]

REACTIONS (10)
  - BALANCE DISORDER [None]
  - CONDITION AGGRAVATED [None]
  - DIZZINESS [None]
  - DRUG WITHDRAWAL SYNDROME [None]
  - HEADACHE [None]
  - HYPERTENSION [None]
  - IRRITABILITY [None]
  - NAUSEA [None]
  - SCREAMING [None]
  - TINNITUS [None]
